FAERS Safety Report 7893037-1 (Version None)
Quarter: 2011Q4

REPORT INFORMATION
  Report Type: 
  Country: None (occurrence: None)
  Receive Date: 20111104
  Receipt Date: 20111025
  Transmission Date: 20120403
  Serious: Yes (Other)
  Sender: FDA-Public Use
  Company Number: US-BRISTOL-MYERS SQUIBB COMPANY-16197576

PATIENT
  Age: 75 Year
  Sex: Male

DRUGS (1)
  1. ONGLYZA [Suspect]
     Dates: start: 20110419

REACTIONS (1)
  - LIPASE INCREASED [None]
